FAERS Safety Report 5241846-X (Version None)
Quarter: 2007Q1

REPORT INFORMATION
  Report Type: 
  Country: None (occurrence: None)
  Receive Date: 20070220
  Receipt Date: 20070212
  Transmission Date: 20070707
  Serious: Yes (Hospitalization)
  Sender: FDA-Public Use
  Company Number: US-JNJFOC-20061105866

PATIENT
  Sex: Female
  Weight: 75.3 kg

DRUGS (5)
  1. ORTHO EVRA [Suspect]
     Indication: DRUG USE FOR UNKNOWN INDICATION
     Route: 062
  2. ZYRTEC [Concomitant]
     Indication: DRUG USE FOR UNKNOWN INDICATION
  3. ALEVE [Concomitant]
     Indication: DRUG USE FOR UNKNOWN INDICATION
  4. BACTRIM DS [Concomitant]
     Indication: URINARY TRACT INFECTION
  5. NAPROSYN [Concomitant]
     Indication: COSTOCHONDRITIS

REACTIONS (1)
  - PULMONARY EMBOLISM [None]
